FAERS Safety Report 6278453-6 (Version None)
Quarter: 2009Q3

REPORT INFORMATION
  Report Type: 
  Country: None (occurrence: None)
  Receive Date: 20090722
  Receipt Date: 20090713
  Transmission Date: 20100115
  Serious: Yes (Other)
  Sender: FDA-Public Use
  Company Number: PHEH2008US08861

PATIENT
  Sex: Male

DRUGS (10)
  1. STALEVO 100 [Suspect]
     Dosage: 200 MG, FIVE TIMES A DAY
     Route: 048
     Dates: start: 20080711, end: 20081013
  2. ENTACAPONE [Suspect]
     Dosage: UNK
     Dates: end: 20081001
  3. AVAPRO [Concomitant]
     Dosage: 300 UNK, QD
     Route: 048
  4. CELEBREX [Concomitant]
     Dosage: 200 UNK, QD
  5. CYANOCOBALAMIN [Concomitant]
     Dosage: UNK, QMO
  6. LEXAPRO [Concomitant]
     Dosage: 20 MG, QD
     Route: 048
  7. GLIMEPIRIDE [Concomitant]
     Dosage: 2 MG, QD
     Route: 048
  8. LIPITOR [Concomitant]
     Dosage: 20 MG, QD
  9. NAMENDA [Concomitant]
     Dosage: 10 MG, QD
     Route: 048
  10. NEXIUM [Concomitant]
     Dosage: 40 MG, QD
     Route: 048

REACTIONS (16)
  - ALANINE AMINOTRANSFERASE INCREASED [None]
  - ASPARTATE AMINOTRANSFERASE INCREASED [None]
  - BLOOD ALBUMIN DECREASED [None]
  - BLOOD ALKALINE PHOSPHATASE INCREASED [None]
  - BLOOD BILIRUBIN INCREASED [None]
  - DECREASED APPETITE [None]
  - GALLBLADDER DISORDER [None]
  - HAEMOGLOBIN DECREASED [None]
  - HEPATIC CALCIFICATION [None]
  - HEPATOBILIARY DISEASE [None]
  - HEPATOTOXICITY [None]
  - JAUNDICE [None]
  - LIVER INJURY [None]
  - PLATELET COUNT DECREASED [None]
  - PROTHROMBIN TIME PROLONGED [None]
  - PRURITUS [None]
